FAERS Safety Report 9467153 (Version 1)
Quarter: 2013Q3

REPORT INFORMATION
  Report Type: Spontaneous
  Country: CH (occurrence: CH)
  Receive Date: 20130820
  Receipt Date: 20130820
  Transmission Date: 20140515
  Serious: Yes (Other)
  Sender: FDA-Public Use
  Company Number: CH-AMGEN-CHECT2013057938

PATIENT
  Age: 25 Year
  Sex: Male

DRUGS (2)
  1. ENBREL [Suspect]
     Indication: SPONDYLOARTHROPATHY
     Dosage: UNK
     Route: 065
  2. INFLIXIMAB [Suspect]
     Indication: SPONDYLOARTHROPATHY
     Dosage: UNK
     Route: 065

REACTIONS (1)
  - Myelopathy [Unknown]
